FAERS Safety Report 16579308 (Version 5)
Quarter: 2019Q4

REPORT INFORMATION
  Report Type: Report from Study
  Country: CN (occurrence: CN)
  Receive Date: 20190716
  Receipt Date: 20191217
  Transmission Date: 20200122
  Serious: Yes (Hospitalization)
  Sender: FDA-Public Use
  Company Number: CN-ROCHE-2352274

PATIENT
  Age: 47 Year
  Sex: Female
  Weight: 54 kg

DRUGS (8)
  1. RABEPRAZOLE SODIUM. [Concomitant]
     Active Substance: RABEPRAZOLE SODIUM
     Indication: VOMITING
     Route: 065
     Dates: start: 20181121
  2. DIAMMONIUM GLYCYRRHIZINATE [Concomitant]
     Active Substance: HERBALS\DIAMMONIUM GLYCYRRHIZINATE
     Indication: TRANSAMINASES INCREASED
  3. PACLITAXEL. [Suspect]
     Active Substance: PACLITAXEL
     Indication: OVARIAN CANCER
     Dosage: MOST RECENT DOSE OF PACLITAXEL (218 MG ONCE PER 3 WEEKS): 19/FEB/2019
     Route: 042
     Dates: start: 20181024
  4. CARBOPLATIN. [Suspect]
     Active Substance: CARBOPLATIN
     Indication: OVARIAN CANCER
     Dosage: AT A DOSE TO ACHIEVE A TARGET AREA UNDER THE CURVE (AUC) OF 6 MILLIGRAMS PER MILLILITER*MINUTE (MG/M
     Route: 042
     Dates: start: 20181024
  5. PLACEBO [Suspect]
     Active Substance: UNSPECIFIED INGREDIENT
     Indication: OVARIAN CANCER
     Dosage: DATE OF MOST RECENT DOSE OF PLACEBO: 26/JUN/2019
     Route: 042
     Dates: start: 20181024
  6. BEVACIZUMAB. [Suspect]
     Active Substance: BEVACIZUMAB
     Indication: OVARIAN CANCER
     Dosage: MOST RECENT DOSE OF BEVACIZUMAB (780MG ONCE PER 3 WEEKS): 26/JUN/2019
     Route: 042
     Dates: start: 20181114
  7. MOSAPRIDE CITRATE [Concomitant]
     Active Substance: MOSAPRIDE CITRATE
     Indication: VOMITING
     Dosage: DISPERSIBLE TABLETS
     Route: 065
     Dates: start: 20181121
  8. DIAMMONIUM GLYCYRRHIZINATE [Concomitant]
     Active Substance: HERBALS\DIAMMONIUM GLYCYRRHIZINATE
     Indication: ALANINE AMINOTRANSFERASE INCREASED
     Route: 065
     Dates: start: 20190627, end: 20190708

REACTIONS (1)
  - Hepatic function abnormal [Recovered/Resolved]

NARRATIVE: CASE EVENT DATE: 20190625
